FAERS Safety Report 20850130 (Version 1)
Quarter: 2022Q2

REPORT INFORMATION
  Report Type: Spontaneous
  Country: FR (occurrence: FR)
  Receive Date: 20220519
  Receipt Date: 20220519
  Transmission Date: 20220721
  Serious: Yes (Life-Threatening, Hospitalization, Other)
  Sender: FDA-Public Use
  Company Number: None

PATIENT
  Age: 79 Year
  Sex: Male
  Weight: 68 kg

DRUGS (3)
  1. NPLATE [Suspect]
     Active Substance: ROMIPLOSTIM
     Indication: Immune thrombocytopenia
     Dosage: 10 MICROGRAM/KILOGRAM,TOTAL
     Route: 058
     Dates: start: 20220327, end: 20220327
  2. NPLATE [Suspect]
     Active Substance: ROMIPLOSTIM
     Dosage: 7.5 MICROGRAM/KILOGRAM, TOTAL
     Route: 058
     Dates: start: 20220331, end: 20220414
  3. NPLATE [Suspect]
     Active Substance: ROMIPLOSTIM
     Dosage: 5 MICROGRAM/KILOGRAM, TOTAL
     Route: 058
     Dates: start: 20220324, end: 20220324

REACTIONS (1)
  - Ischaemic stroke [Recovered/Resolved with Sequelae]

NARRATIVE: CASE EVENT DATE: 20220420
